FAERS Safety Report 19811055 (Version 2)
Quarter: 2021Q4

REPORT INFORMATION
  Report Type: Spontaneous
  Country: FI (occurrence: FI)
  Receive Date: 20210910
  Receipt Date: 20211006
  Transmission Date: 20220303
  Serious: Yes (Life-Threatening, Hospitalization)
  Sender: FDA-Public Use
  Company Number: FI-ASTRAZENECA-2021A657088

PATIENT
  Sex: Female

DRUGS (27)
  1. BEVACIZUMAB [Suspect]
     Active Substance: BEVACIZUMAB
     Indication: Ovarian cancer
     Route: 042
     Dates: start: 20210111, end: 20210111
  2. BEVACIZUMAB [Suspect]
     Active Substance: BEVACIZUMAB
     Route: 042
     Dates: start: 20210519, end: 20210519
  3. LEVOFLOXACIN [Concomitant]
     Active Substance: LEVOFLOXACIN
     Indication: Post procedural infection
     Dosage: DAILY
     Route: 048
     Dates: start: 20210526
  4. CARBOPLATIN [Concomitant]
     Active Substance: CARBOPLATIN
     Indication: Ovarian cancer
     Dosage: AUC 5 OR AUC 6
     Route: 042
     Dates: start: 20210208, end: 20210208
  5. CARBOPLATIN [Concomitant]
     Active Substance: CARBOPLATIN
     Dosage: AUC 5 OR AUC 6
     Route: 042
     Dates: start: 20201217, end: 20201217
  6. CARBOPLATIN [Concomitant]
     Active Substance: CARBOPLATIN
     Dosage: AUC 5 OR AUC 6
     Route: 042
     Dates: start: 20210519, end: 20210519
  7. CARBOPLATIN [Concomitant]
     Active Substance: CARBOPLATIN
     Dosage: AUC 5 OR AUC 6
     Route: 042
     Dates: start: 20210111, end: 20210111
  8. CARBOPLATIN [Concomitant]
     Active Substance: CARBOPLATIN
     Dosage: 600.00 MG
     Route: 042
     Dates: start: 20210909, end: 20210909
  9. CARBOPLATIN [Concomitant]
     Active Substance: CARBOPLATIN
     Dosage: 670  MG
     Route: 042
     Dates: start: 20210111, end: 20210111
  10. CETIRIZINE HYDROCHLORIDE [Concomitant]
     Active Substance: CETIRIZINE HYDROCHLORIDE
     Indication: Premedication
     Dosage: DAILY
     Route: 048
     Dates: start: 20201217, end: 20201217
  11. AMOXICILLIN\CLAVULANIC ACID [Concomitant]
     Active Substance: AMOXICILLIN\CLAVULANIC ACID
     Indication: Post procedural infection
     Dosage: DAILY
     Route: 048
     Dates: start: 20210412, end: 20210419
  12. PIPERACILLIN SODIUM\TAZOBACTAM SODIUM [Concomitant]
     Active Substance: PIPERACILLIN SODIUM\TAZOBACTAM SODIUM
     Indication: Post procedural infection
     Dosage: DAILY
     Dates: start: 20210306, end: 20210412
  13. PIPERACILLIN SODIUM\TAZOBACTAM SODIUM [Concomitant]
     Active Substance: PIPERACILLIN SODIUM\TAZOBACTAM SODIUM
     Dosage: DAILY
     Dates: start: 20210422, end: 20210426
  14. CEPHALEXIN [Concomitant]
     Active Substance: CEPHALEXIN
     Indication: Post procedural infection
     Dosage: DAILY
     Route: 048
     Dates: start: 20210401, end: 20210406
  15. SOLU-CORTEF [Concomitant]
     Active Substance: HYDROCORTISONE SODIUM SUCCINATE
     Indication: Hypersensitivity
     Dosage: DAILY
     Route: 042
     Dates: start: 20201217, end: 20201217
  16. PACLITAXEL [Concomitant]
     Active Substance: PACLITAXEL
     Indication: Ovarian cancer
     Dosage: 360.00 MG
     Route: 042
     Dates: start: 20210519, end: 20210519
  17. PACLITAXEL [Concomitant]
     Active Substance: PACLITAXEL
     Dosage: 175
     Route: 042
     Dates: start: 20210208, end: 20210208
  18. PACLITAXEL [Concomitant]
     Active Substance: PACLITAXEL
     Dosage: 360.00 MG
     Route: 042
     Dates: start: 20210111, end: 20210111
  19. PACLITAXEL [Concomitant]
     Active Substance: PACLITAXEL
     Dosage: 390.00 MG
     Route: 042
     Dates: start: 20210208, end: 20210208
  20. PACLITAXEL [Concomitant]
     Active Substance: PACLITAXEL
     Dosage: 360.00 MG
     Route: 042
     Dates: start: 20201217, end: 20201217
  21. PACLITAXEL [Concomitant]
     Active Substance: PACLITAXEL
     Dosage: 340.00 MG
     Route: 042
     Dates: start: 20201217, end: 20201217
  22. METRONIDAZOLE [Concomitant]
     Active Substance: METRONIDAZOLE
     Indication: Post procedural infection
     Dosage: DAILY
     Route: 048
     Dates: start: 20210526
  23. PEPCID [Concomitant]
     Active Substance: FAMOTIDINE
     Indication: Premedication
     Dosage: DAILY
     Route: 048
     Dates: start: 20201217, end: 20201217
  24. ALOXI [Concomitant]
     Active Substance: PALONOSETRON HYDROCHLORIDE
     Indication: Premedication
     Dosage: DAILY
     Route: 048
     Dates: start: 20201217
  25. DEXAMETHASONE [Concomitant]
     Active Substance: DEXAMETHASONE
     Indication: Premedication
     Dosage: DAILY
     Route: 048
     Dates: start: 20210111
  26. DEXAMETHASONE [Concomitant]
     Active Substance: DEXAMETHASONE
     Dosage: DAILY
     Route: 048
     Dates: start: 20201217, end: 20201217
  27. FLAGYL [Concomitant]
     Active Substance: METRONIDAZOLE\METRONIDAZOLE HYDROCHLORIDE
     Indication: Post procedural infection
     Dosage: DAILY
     Route: 048
     Dates: start: 20210301, end: 20210406

REACTIONS (1)
  - Abdominal abscess [Recovered/Resolved]

NARRATIVE: CASE EVENT DATE: 20210703
